FAERS Safety Report 4678342-4 (Version None)
Quarter: 2005Q2

REPORT INFORMATION
  Report Type: 
  Country: None (occurrence: None)
  Receive Date: 20050531
  Receipt Date: 20050531
  Transmission Date: 20051028
  Serious: No
  Sender: FDA-Public Use
  Company Number: None

PATIENT
  Age: 49 Year
  Sex: Male
  Weight: 80 kg

DRUGS (1)
  1. VIAGRA [Suspect]
     Dosage: ONCE DAILY

REACTIONS (3)
  - ABNORMAL SENSATION IN EYE [None]
  - EYE PAIN [None]
  - HEADACHE [None]
